FAERS Safety Report 25453227 (Version 1)
Quarter: 2025Q2

REPORT INFORMATION
  Report Type: Report from Study
  Country: BR (occurrence: BR)
  Receive Date: 20250618
  Receipt Date: 20250618
  Transmission Date: 20250716
  Serious: Yes (Hospitalization)
  Sender: ABBVIE
  Company Number: BR-JNJFOC-20250612447

PATIENT
  Age: 63 Year
  Sex: Female

DRUGS (1)
  1. IBRUTINIB [Suspect]
     Active Substance: IBRUTINIB
     Indication: Chronic lymphocytic leukaemia
     Route: 048
     Dates: start: 20160120

REACTIONS (3)
  - Bundle branch block right [Unknown]
  - Hypertension [Unknown]
  - Sinusitis [Unknown]

NARRATIVE: CASE EVENT DATE: 20160318
